FAERS Safety Report 21849282 (Version 1)
Quarter: 2023Q1

REPORT INFORMATION
  Report Type: Spontaneous
  Country: US (occurrence: US)
  Receive Date: 20230111
  Receipt Date: 20230111
  Transmission Date: 20230417
  Serious: No
  Sender: FDA-Public Use
  Company Number: US-PFIZER INC-202300008363

PATIENT
  Age: 66 Year
  Sex: Female

DRUGS (6)
  1. PAXLOVID [Suspect]
     Active Substance: NIRMATRELVIR\RITONAVIR
     Indication: COVID-19 treatment
     Dosage: UNK
     Dates: start: 20221220, end: 20221223
  2. PREGABALIN [Concomitant]
     Active Substance: PREGABALIN
  3. TRAMADOL [Concomitant]
     Active Substance: TRAMADOL
  4. DILTIAZEM [Concomitant]
     Active Substance: DILTIAZEM
  5. PREDNISONE [Concomitant]
     Active Substance: PREDNISONE
  6. RITUXAN [Concomitant]
     Active Substance: RITUXIMAB

REACTIONS (1)
  - Therapeutic product effect incomplete [Not Recovered/Not Resolved]

NARRATIVE: CASE EVENT DATE: 20221220
